FAERS Safety Report 12995576 (Version 2)
Quarter: 2016Q4

REPORT INFORMATION
  Report Type: Report from Study
  Country: RS (occurrence: RS)
  Receive Date: 20161202
  Receipt Date: 20161206
  Transmission Date: 20170207
  Serious: Yes (Death, Other)
  Sender: FDA-Public Use
  Company Number: RS-GLAXOSMITHKLINE-RS2016GSK178260

PATIENT
  Age: 25 Year
  Sex: Male

DRUGS (2)
  1. TERBINAFINE. [Suspect]
     Active Substance: TERBINAFINE
     Indication: SNEEZING
  2. TERBINAFINE. [Suspect]
     Active Substance: TERBINAFINE
     Indication: RHINORRHOEA
     Dosage: UNK

REACTIONS (1)
  - Sudden death [Fatal]
